FAERS Safety Report 24183440 (Version 1)
Quarter: 2024Q3

REPORT INFORMATION
  Report Type: Spontaneous
  Country: AU (occurrence: AU)
  Receive Date: 20240807
  Receipt Date: 20240807
  Transmission Date: 20241017
  Serious: Yes (Other)
  Sender: MYLAN
  Company Number: AU-MYLANLABS-2024M1072725

PATIENT
  Age: 77 Year
  Sex: Male

DRUGS (3)
  1. SPIRONOLACTONE [Suspect]
     Active Substance: SPIRONOLACTONE
     Indication: Primary hyperaldosteronism
     Dosage: 25 MILLIGRAM, QD
     Route: 065
  2. SPIRONOLACTONE [Suspect]
     Active Substance: SPIRONOLACTONE
     Dosage: UNK,UPTITRATION TO ?50 MG
     Route: 065
  3. EPLERENONE [Suspect]
     Active Substance: EPLERENONE
     Indication: Primary hyperaldosteronism
     Dosage: 50 MILLIGRAM, BID
     Route: 065

REACTIONS (5)
  - Renal impairment [Recovered/Resolved]
  - Condition aggravated [Recovered/Resolved]
  - Hyperkalaemia [Recovered/Resolved]
  - Gynaecomastia [Recovered/Resolved]
  - Headache [Unknown]
